FAERS Safety Report 7331609-3 (Version None)
Quarter: 2011Q1

REPORT INFORMATION
  Report Type: 
  Country: None (occurrence: None)
  Receive Date: 20110304
  Receipt Date: 20110225
  Transmission Date: 20110831
  Serious: Yes (Death, Hospitalization)
  Sender: FDA-Public Use
  Company Number: DE-GENZYME-RENA-1001073

PATIENT
  Sex: Male

DRUGS (8)
  1. IRON [Concomitant]
     Indication: PRODUCT USED FOR UNKNOWN INDICATION
  2. EPOGEN [Concomitant]
     Indication: PRODUCT USED FOR UNKNOWN INDICATION
  3. RENAGEL [Suspect]
     Dosage: 0.8 G, UNK
     Route: 048
     Dates: start: 20090522
  4. DIURETICS [Suspect]
     Indication: PRODUCT USED FOR UNKNOWN INDICATION
  5. ANGIOTENSIN II ANTAGONISTS [Suspect]
     Indication: PRODUCT USED FOR UNKNOWN INDICATION
  6. BETA BLOCKING AGENTS [Suspect]
     Indication: PRODUCT USED FOR UNKNOWN INDICATION
  7. CALCIUM CHANNEL BLOCKERS [Suspect]
     Indication: PRODUCT USED FOR UNKNOWN INDICATION
  8. RENAGEL [Suspect]
     Indication: HYPERPHOSPHATAEMIA
     Dosage: 2.4 G, QD
     Route: 048

REACTIONS (2)
  - CEREBRAL HAEMORRHAGE [None]
  - PERIPHERAL ARTERIAL OCCLUSIVE DISEASE [None]
